FAERS Safety Report 7039792-4 (Version None)
Quarter: 2010Q4

REPORT INFORMATION
  Report Type: 
  Country: None (occurrence: None)
  Receive Date: 20101012
  Receipt Date: 20101001
  Transmission Date: 20110411
  Serious: Yes (Other)
  Sender: FDA-Public Use
  Company Number: US-MERCK-1010USA00111

PATIENT
  Age: 65 Year
  Sex: Female

DRUGS (3)
  1. HYDROCORTONE [Suspect]
     Indication: UVEITIS
     Route: 048
  2. HYDROCORTONE [Suspect]
     Indication: ADDISON'S DISEASE
     Route: 048
  3. AZATHIOPRINE [Concomitant]
     Route: 065

REACTIONS (1)
  - CHORIORETINOPATHY [None]
